FAERS Safety Report 5375854-5 (Version None)
Quarter: 2007Q3

REPORT INFORMATION
  Report Type: 
  Country: None (occurrence: None)
  Receive Date: 20070702
  Receipt Date: 20070622
  Transmission Date: 20080115
  Serious: Yes (Disabling, Other)
  Sender: FDA-Public Use
  Company Number: PHRM2007FR01713

PATIENT
  Age: 52 Year
  Sex: Female

DRUGS (5)
  1. ZOMETA [Suspect]
     Indication: METASTASES TO BONE
     Dosage: 4 MG, QMO
     Route: 042
     Dates: start: 20070209, end: 20070322
  2. TAXOTERE [Suspect]
     Indication: BREAST CANCER METASTATIC
     Dosage: UNK, UNK
     Dates: start: 20070209, end: 20070312
  3. CARBOPLATIN [Suspect]
     Indication: BREAST CANCER METASTATIC
     Dates: start: 20070209
  4. AVASTIN [Concomitant]
     Indication: BREAST CANCER METASTATIC
     Dosage: 10 MG/KG
     Dates: start: 20070227
  5. TAXOL [Suspect]
     Indication: BREAST CANCER METASTATIC

REACTIONS (5)
  - OEDEMA [None]
  - OSTEONECROSIS [None]
  - PATHOLOGICAL FRACTURE [None]
  - TOOTH EXTRACTION [None]
  - WEIGHT INCREASED [None]
